FAERS Safety Report 23213603 (Version 1)
Quarter: 2023Q4

REPORT INFORMATION
  Report Type: Report from Study
  Country: CA (occurrence: CA)
  Receive Date: 20231121
  Receipt Date: 20231121
  Transmission Date: 20240110
  Serious: Yes (Other)
  Sender: FDA-Public Use
  Company Number: CA-BAUSCH-BL-2023-017092

PATIENT
  Sex: Female

DRUGS (3)
  1. CONTRAVE [Suspect]
     Active Substance: BUPROPION HYDROCHLORIDE\NALTREXONE HYDROCHLORIDE
     Indication: Weight control
     Dosage: 90/8MG, IN SECOND WEEK TAKING 1 TABLET/DAY, FIRST ATTEMPT
     Route: 048
     Dates: start: 202309, end: 2023
  2. CONTRAVE [Suspect]
     Active Substance: BUPROPION HYDROCHLORIDE\NALTREXONE HYDROCHLORIDE
     Dosage: 90/8MG, 1 TABLET Q AM, SECOND ATTEMPT
     Route: 048
     Dates: start: 20231030, end: 20231112
  3. CONTRAVE [Suspect]
     Active Substance: BUPROPION HYDROCHLORIDE\NALTREXONE HYDROCHLORIDE
     Dosage: 90/8MG, 1 TABLET Q AM, 1 TABLET Q PM
     Route: 048
     Dates: start: 20231113

REACTIONS (8)
  - Surgery [Unknown]
  - Binge eating [Unknown]
  - Taste disorder [Unknown]
  - Thirst decreased [Unknown]
  - Musculoskeletal chest pain [Recovered/Resolved]
  - Presyncope [Unknown]
  - Therapy interrupted [Unknown]
  - Intentional product use issue [Unknown]

NARRATIVE: CASE EVENT DATE: 20230101
